FAERS Safety Report 5000029-9 (Version None)
Quarter: 2006Q2

REPORT INFORMATION
  Report Type: 
  Country: None (occurrence: None)
  Receive Date: 20060509
  Receipt Date: 20060418
  Transmission Date: 20061013
  Serious: Yes (Hospitalization)
  Sender: FDA-Public Use
  Company Number: 6022416

PATIENT
  Age: 35 Year
  Sex: Female

DRUGS (1)
  1. AZATHIOPRINE [Suspect]
     Indication: DRUG ADMINISTRATION ERROR
     Dosage: 300,000 (50 MG, 6 IN 1 D) ORAL
     Route: 048

REACTIONS (7)
  - ALOPECIA [None]
  - DIZZINESS [None]
  - DRUG ADMINISTRATION ERROR [None]
  - FALL [None]
  - MUSCLE SPASMS [None]
  - NAUSEA [None]
  - VOMITING [None]
